FAERS Safety Report 9342196 (Version 2)
Quarter: 2013Q2

REPORT INFORMATION
  Report Type: Spontaneous
  Country: US (occurrence: US)
  Receive Date: 20130611
  Receipt Date: 20130620
  Transmission Date: 20140414
  Serious: No
  Sender: FDA-Public Use
  Company Number: US-BIOGENIDEC-2013BI047489

PATIENT
  Age: 41 Year
  Sex: Female

DRUGS (1)
  1. AVONEX [Suspect]
     Indication: MULTIPLE SCLEROSIS
     Route: 030
     Dates: start: 20030816

REACTIONS (6)
  - Injection site mass [Not Recovered/Not Resolved]
  - Stress [Not Recovered/Not Resolved]
  - Weight fluctuation [Recovered/Resolved]
  - Weight decreased [Not Recovered/Not Resolved]
  - Injection site urticaria [Not Recovered/Not Resolved]
  - Abscess limb [Not Recovered/Not Resolved]
